FAERS Safety Report 5640927-6 (Version None)
Quarter: 2008Q1

REPORT INFORMATION
  Report Type: 
  Country: None (occurrence: None)
  Receive Date: 20080225
  Receipt Date: 20080215
  Transmission Date: 20080703
  Serious: Yes (Hospitalization)
  Sender: FDA-Public Use
  Company Number: FRP08000029

PATIENT
  Age: 74 Year
  Sex: Female

DRUGS (5)
  1. ACTONEL [Suspect]
     Indication: OSTEOPOROSIS
     Dosage: 35 MG, 1/WEEK, ORAL
     Route: 048
     Dates: start: 20051101
  2. OSTRAM  /00108001/(CALCIUM CARBONATE) [Suspect]
     Dosage: ORAL
     Route: 048
     Dates: start: 20051101, end: 20071101
  3. DILTIAZEM HYDROCHLORIDE [Suspect]
     Dosage: ORAL
     Route: 048
     Dates: start: 20070401, end: 20080101
  4. COKENZEN(HYDROCHLOROTHIAZIDE, CANDESARTAN CILEXETIL) [Suspect]
     Dosage: ORAL
     Route: 048
     Dates: start: 20070301
  5. OPHTIM(TIMOLOL MALEATE) [Suspect]
     Dates: start: 20021201

REACTIONS (1)
  - SPEECH DISORDER [None]
